FAERS Safety Report 19299772 (Version 1)
Quarter: 2021Q2

REPORT INFORMATION
  Report Type: Spontaneous
  Country: JP (occurrence: JP)
  Receive Date: 20210524
  Receipt Date: 20210524
  Transmission Date: 20210717
  Serious: Yes (Death)
  Sender: FDA-Public Use
  Company Number: JP-JNJFOC-20210529438

PATIENT
  Age: 80 Year
  Sex: Female

DRUGS (5)
  1. ENTRESTO [Concomitant]
     Active Substance: SACUBITRIL\VALSARTAN
     Dosage: DOSE UNKNOWN
     Route: 048
     Dates: end: 20210510
  2. SAMSCA [Concomitant]
     Active Substance: TOLVAPTAN
     Dosage: DOSE UNKNOWN
     Dates: end: 20210510
  3. WARFARIN POTASSIUM [Suspect]
     Active Substance: WARFARIN POTASSIUM
     Indication: PRODUCT USED FOR UNKNOWN INDICATION
     Route: 048
     Dates: end: 20210510
  4. ZINC. [Concomitant]
     Active Substance: ZINC
     Dosage: DOSE UNKNOWN
     Dates: end: 20210510
  5. OPSUMIT [Suspect]
     Active Substance: MACITENTAN
     Indication: PULMONARY ARTERIAL HYPERTENSION
     Route: 048
     Dates: start: 20210301, end: 20210510

REACTIONS (3)
  - Epistaxis [Fatal]
  - Marasmus [Fatal]
  - Haemorrhage [Fatal]

NARRATIVE: CASE EVENT DATE: 20210510
